FAERS Safety Report 17265993 (Version 3)
Quarter: 2020Q2

REPORT INFORMATION
  Report Type: Spontaneous
  Country: CA (occurrence: CA)
  Receive Date: 20200114
  Receipt Date: 20200527
  Transmission Date: 20200713
  Serious: Yes (Hospitalization)
  Sender: FDA-Public Use
  Company Number: CA-DRREDDYS-USA/CAN/20/0118450

PATIENT
  Age: 67 Year
  Sex: Male

DRUGS (9)
  1. PRADAXA [Suspect]
     Active Substance: DABIGATRAN ETEXILATE MESYLATE
     Indication: THROMBOSIS PROPHYLAXIS
     Route: 048
  2. DABIGATRAN ETEXILATE MESILATE [Suspect]
     Active Substance: DABIGATRAN ETEXILATE MESYLATE
     Indication: THROMBOSIS PROPHYLAXIS
     Route: 048
  3. CORTICOSTEROIDS [Concomitant]
     Active Substance: CORTICOSTEROID NOS
     Route: 065
  4. ADRENAL CORTICAL EXTRACT [Concomitant]
     Active Substance: BOS TAURUS ADRENAL CORTEX CORTICOSTEROIDS
     Indication: PRODUCT USED FOR UNKNOWN INDICATION
     Route: 065
  5. PRADAXA [Suspect]
     Active Substance: DABIGATRAN ETEXILATE MESYLATE
     Route: 065
  6. CORTICOSTEROIDS [Concomitant]
     Active Substance: CORTICOSTEROID NOS
     Indication: PRODUCT USED FOR UNKNOWN INDICATION
     Route: 065
  7. CORTICOSTEROIDS [Concomitant]
     Active Substance: CORTICOSTEROID NOS
     Route: 065
  8. ATORVASTATIN [Suspect]
     Active Substance: ATORVASTATIN
     Indication: BLOOD CHOLESTEROL INCREASED
     Route: 048
  9. DABIGATRAN ETEXILATE MESILATE [Suspect]
     Active Substance: DABIGATRAN ETEXILATE MESYLATE
     Route: 065

REACTIONS (3)
  - Rash erythematous [Recovering/Resolving]
  - Skin warm [Recovering/Resolving]
  - Hypersensitivity [Recovering/Resolving]
